FAERS Safety Report 5625272-7 (Version None)
Quarter: 2008Q1

REPORT INFORMATION
  Report Type: 
  Country: None (occurrence: None)
  Receive Date: 20080208
  Receipt Date: 20080206
  Transmission Date: 20080703
  Serious: Yes (Other)
  Sender: FDA-Public Use
  Company Number: 2007SP024022

PATIENT
  Age: 67 Year
  Sex: Female
  Weight: 73 kg

DRUGS (10)
  1. DESLORATADINE [Suspect]
     Indication: DRUG USE FOR UNKNOWN INDICATION
     Dosage: ; PO
     Route: 048
     Dates: start: 20071026, end: 20071108
  2. ANTIBIOTICS [Concomitant]
  3. VASTAREL [Concomitant]
  4. ALDACTONE [Concomitant]
  5. TAHOR [Concomitant]
  6. LAROXYL [Concomitant]
  7. EUPANTOL [Concomitant]
  8. DACRYOSERUM [Concomitant]
  9. STERDEX [Concomitant]
  10. LARMABAK [Concomitant]

REACTIONS (2)
  - HALLUCINATION, VISUAL [None]
  - INSOMNIA [None]
